FAERS Safety Report 25992397 (Version 1)
Quarter: 2025Q4

REPORT INFORMATION
  Report Type: Spontaneous
  Country: US (occurrence: None)
  Receive Date: 20251103
  Receipt Date: 20251103
  Transmission Date: 20260117
  Serious: Yes (Other)
  Sender: FDA-CTU
  Company Number: None

PATIENT
  Age: 87 Year
  Sex: Female

DRUGS (1)
  1. TREMFYA [Suspect]
     Active Substance: GUSELKUMAB
     Indication: Prostatic specific antigen
     Dosage: OTHER FREQUENCY : EVERY 8 WEEKS;?
     Route: 058

REACTIONS (2)
  - Urinary tract infection [None]
  - Diverticulum intestinal [None]

NARRATIVE: CASE EVENT DATE: 20251025
